FAERS Safety Report 24650985 (Version 3)
Quarter: 2025Q1

REPORT INFORMATION
  Report Type: Report from Study
  Country: JP (occurrence: JP)
  Receive Date: 20241122
  Receipt Date: 20250218
  Transmission Date: 20250408
  Serious: Yes (Death, Life-Threatening, Hospitalization, Other)
  Sender: BRISTOL-MYERS SQUIBB COMPANY
  Company Number: JP-ONO-2024JP023479

PATIENT
  Age: 74 Year
  Sex: Male
  Weight: 44.4 kg

DRUGS (9)
  1. YERVOY [Suspect]
     Active Substance: IPILIMUMAB
     Indication: Non-small cell lung cancer recurrent
     Dosage: 1 MG/KG, Q6W
     Route: 041
     Dates: start: 20240712, end: 20241009
  2. OPDIVO [Suspect]
     Active Substance: NIVOLUMAB
     Indication: Non-small cell lung cancer recurrent
     Dosage: 360 MG, Q3W
     Route: 041
     Dates: start: 20240712, end: 20241030
  3. ANAMORELIN HYDROCHLORIDE [Concomitant]
     Active Substance: ANAMORELIN HYDROCHLORIDE
     Indication: Cachexia
     Dosage: 50 MG, EVERYDAY (UPON WAKING UP)
     Route: 048
     Dates: start: 20240803, end: 20241113
  4. CODEINE PHOSPHATE [Concomitant]
     Active Substance: CODEINE PHOSPHATE
     Indication: Cough
     Dosage: 10 MG, Q8H (AFTER BREAKFAST, LUNCH AND DINNER)
     Route: 048
     Dates: start: 20240606, end: 20241113
  5. CALONAL [Concomitant]
     Active Substance: ACETAMINOPHEN
     Indication: Analgesic therapy
     Route: 048
     Dates: start: 20240715, end: 20241113
  6. MAGNESIUM OXIDE [Concomitant]
     Active Substance: MAGNESIUM OXIDE
     Indication: Laxative supportive care
     Dosage: 250 MG, Q8H (AFTER BREAKFAST, LUNCH AND DINNER)
     Route: 048
     Dates: start: 20240711, end: 20241113
  7. URSODEOXYCHOL ACID [Concomitant]
     Indication: Deficiency of bile secretion
     Dosage: 50 MG, Q8H (AFTER BREAKFAST, LUNCH AND DINNER)
     Route: 048
     Dates: start: 20241003, end: 20241113
  8. BUTYLSCOPOLAMINE BROMIDE [Concomitant]
     Active Substance: BUTYLSCOPOLAMINE BROMIDE
     Indication: Analgesic therapy
     Route: 048
     Dates: start: 20241003, end: 20241113
  9. L-KEFLEX [Concomitant]
     Indication: Cystitis
     Dosage: 500 MG, Q12H (AFTER BREAKFAST AND DINNER)
     Route: 048
     Dates: start: 20241030, end: 20241113

REACTIONS (10)
  - Acute hepatic failure [Fatal]
  - Coma hepatic [Fatal]
  - Hepatic encephalopathy [Unknown]
  - Cholelithiasis [Unknown]
  - Cholangitis acute [Unknown]
  - Renal cyst [Unknown]
  - Hepatic cyst [Unknown]
  - Pleural effusion [Unknown]
  - Lymphadenopathy [Unknown]
  - Cystitis [Unknown]

NARRATIVE: CASE EVENT DATE: 20240918
